FAERS Safety Report 6590185-3 (Version None)
Quarter: 2010Q1

REPORT INFORMATION
  Report Type: 
  Country: None (occurrence: None)
  Receive Date: 20100205
  Receipt Date: 20100127
  Transmission Date: 20100710
  Serious: Yes (Death)
  Sender: FDA-Public Use
  Company Number: 238378K09USA

PATIENT
  Age: 37 Year
  Sex: Male

DRUGS (1)
  1. REBIF [Suspect]
     Indication: MULTIPLE SCLEROSIS
     Dosage: NOT REPOERTED
     Dates: start: 20050804, end: 20070313

REACTIONS (4)
  - COMPLETED SUICIDE [None]
  - DISEASE PROGRESSION [None]
  - GUN SHOT WOUND [None]
  - MULTIPLE SCLEROSIS [None]
